FAERS Safety Report 25986624 (Version 1)
Quarter: 2025Q4

REPORT INFORMATION
  Report Type: Spontaneous
  Country: EU (occurrence: EU)
  Receive Date: 20251031
  Receipt Date: 20251031
  Transmission Date: 20260118
  Serious: Yes (Other)
  Sender: VERTEX
  Company Number: None

PATIENT
  Age: 43 Year
  Sex: Male
  Weight: 83 kg

DRUGS (14)
  1. ELEXACAFTOR\IVACAFTOR\TEZACAFTOR [Suspect]
     Active Substance: ELEXACAFTOR\IVACAFTOR\TEZACAFTOR
     Indication: Cystic fibrosis
     Dosage: 2 TABLETS PER DAY
     Route: 048
     Dates: start: 20220124
  2. KALYDECO [Suspect]
     Active Substance: IVACAFTOR
     Indication: Cystic fibrosis
     Dosage: 1 TABLET PER DAY
     Route: 048
     Dates: start: 20220124
  3. TOBRAMYCIN SULFATE [Concomitant]
     Active Substance: TOBRAMYCIN SULFATE
     Dosage: 300 MG
  4. MOMETASONE FUROATE MONOHYDRATE [Concomitant]
     Active Substance: MOMETASONE FUROATE MONOHYDRATE
  5. CHOLECALCIFEROL [Concomitant]
     Active Substance: CHOLECALCIFEROL
  6. ALLOPURINOL [Concomitant]
     Active Substance: ALLOPURINOL
  7. SERETIDE [Concomitant]
     Active Substance: FLUTICASONE PROPIONATE\SALMETEROL XINAFOATE
  8. PULMOZYME [Concomitant]
     Active Substance: DORNASE ALFA
  9. LANSOPRAZOLE [Concomitant]
     Active Substance: LANSOPRAZOLE
  10. CREON [Concomitant]
     Active Substance: PANCRELIPASE AMYLASE\PANCRELIPASE LIPASE\PANCRELIPASE PROTEASE
  11. DEURSIL [Concomitant]
     Active Substance: URSODIOL
  12. VENTOLIN [Concomitant]
     Active Substance: ALBUTEROL SULFATE
  13. FLUIMUCIL [Concomitant]
     Active Substance: ACETYLCYSTEINE
  14. OMEGA-3-ACID ETHYL ESTERS [Concomitant]
     Active Substance: OMEGA-3-ACID ETHYL ESTERS

REACTIONS (1)
  - Cataract [Not Recovered/Not Resolved]

NARRATIVE: CASE EVENT DATE: 20250929
